FAERS Safety Report 9226362 (Version 2)
Quarter: 2013Q3

REPORT INFORMATION
  Report Type: Spontaneous
  Country: US (occurrence: US)
  Receive Date: 20130411
  Receipt Date: 20130911
  Transmission Date: 20140515
  Serious: Yes (Hospitalization, Disabling, Other)
  Sender: FDA-Public Use
  Company Number: US-MERCK-1304USA004657

PATIENT
  Sex: Female

DRUGS (2)
  1. JANUVIA [Suspect]
     Dosage: UNK
     Route: 048
     Dates: start: 20071016, end: 20071116
  2. JANUVIA [Suspect]
     Dosage: UNK
     Route: 048
     Dates: start: 20111120, end: 20120518

REACTIONS (6)
  - Pancreatic carcinoma [Unknown]
  - Mesenteric neoplasm [Unknown]
  - Metastatic neoplasm [Unknown]
  - Pancreatectomy [Unknown]
  - Splenectomy [Unknown]
  - Cardiac stress test abnormal [Unknown]
